FAERS Safety Report 7565368-6 (Version None)
Quarter: 2011Q2

REPORT INFORMATION
  Report Type: 
  Country: None (occurrence: None)
  Receive Date: 20110623
  Receipt Date: 20110613
  Transmission Date: 20111010
  Serious: No
  Sender: FDA-Public Use
  Company Number: US-BIOGENIDEC-2010BI045010

PATIENT
  Age: 31 Year
  Sex: Female

DRUGS (3)
  1. TYSABRI [Suspect]
     Indication: MULTIPLE SCLEROSIS
     Route: 042
     Dates: start: 20101018
  2. DECADRON [Concomitant]
     Indication: PREMEDICATION
  3. MEDICATION (NOS) [Concomitant]
     Indication: PREMEDICATION

REACTIONS (2)
  - HYPERSENSITIVITY [None]
  - HEADACHE [None]
